FAERS Safety Report 5993176-6 (Version None)
Quarter: 2008Q4

REPORT INFORMATION
  Report Type: 
  Country: None (occurrence: None)
  Receive Date: 20081212
  Receipt Date: 20070817
  Transmission Date: 20090506
  Serious: Yes (Hospitalization, Other)
  Sender: FDA-Public Use
  Company Number: US-ASTRAZENECA-2007UW11937

PATIENT
  Age: 9741 Day
  Sex: Female
  Weight: 64.4 kg

DRUGS (3)
  1. SEROQUEL [Suspect]
     Indication: SLEEP DISORDER
     Route: 048
     Dates: start: 20050822, end: 20070327
  2. SEROQUEL [Suspect]
     Indication: BIPOLAR DISORDER
     Route: 048
     Dates: start: 20050822, end: 20070327
  3. SEROQUEL [Suspect]
     Indication: DEPRESSION
     Route: 048
     Dates: start: 20050822, end: 20070327

REACTIONS (7)
  - ABDOMINAL PAIN [None]
  - ARTHROPATHY [None]
  - DIARRHOEA [None]
  - ENDOMETRIAL ABLATION [None]
  - HYPERGLYCAEMIA [None]
  - PANCREATITIS ACUTE [None]
  - WEIGHT DECREASED [None]
